FAERS Safety Report 8170405-4 (Version None)
Quarter: 2012Q1

REPORT INFORMATION
  Report Type: 
  Country: None (occurrence: None)
  Receive Date: 20120228
  Receipt Date: 20120214
  Transmission Date: 20120608
  Serious: Yes (Other)
  Sender: FDA-Public Use
  Company Number: US-ELI_LILLY_AND_COMPANY-US201202002739

PATIENT
  Age: 16 Year
  Sex: Female

DRUGS (10)
  1. CLONAZEPAM [Concomitant]
  2. AZITHROMYCIN [Concomitant]
  3. SINGULAIR [Concomitant]
  4. ZYPREXA [Suspect]
     Indication: IMPULSIVE BEHAVIOUR
  5. LITHIUM [Concomitant]
  6. BENZTROPINE MESYLATE [Concomitant]
  7. STRATTERA [Suspect]
     Indication: IMPULSIVE BEHAVIOUR
     Route: 065
  8. RISPERDAL [Concomitant]
  9. SERTRALINE HYDROCHLORIDE [Concomitant]
  10. ACIPHEX [Concomitant]

REACTIONS (12)
  - AFFECTIVE DISORDER [None]
  - HALLUCINATION [None]
  - DELUSION [None]
  - SUICIDE ATTEMPT [None]
  - SUICIDAL IDEATION [None]
  - CONVULSION [None]
  - MOOD SWINGS [None]
  - SEXUALLY INAPPROPRIATE BEHAVIOUR [None]
  - OFF LABEL USE [None]
  - LIBIDO INCREASED [None]
  - AMNESIA [None]
  - FAECAL INCONTINENCE [None]
